FAERS Safety Report 5796625-1 (Version None)
Quarter: 2008Q2

REPORT INFORMATION
  Report Type: 
  Country: None (occurrence: None)
  Receive Date: 20080627
  Receipt Date: 20080602
  Transmission Date: 20081010
  Serious: Yes (Hospitalization)
  Sender: FDA-Public Use
  Company Number: 1-16223157

PATIENT
  Age: 85 Year
  Sex: Female

DRUGS (1)
  1. FENTANYL [Suspect]
     Indication: PAIN
     Dosage: ONE PATCH EVERY 72HR, TRANSDERMAL
     Route: 062
     Dates: start: 20080205, end: 20080301

REACTIONS (2)
  - ASTHENIA [None]
  - HYPOTONIA [None]
